FAERS Safety Report 11074771 (Version 1)
Quarter: 2015Q2

REPORT INFORMATION
  Report Type: Spontaneous
  Country: IT (occurrence: IT)
  Receive Date: 20150429
  Receipt Date: 20150429
  Transmission Date: 20150821
  Serious: Yes (Disabling)
  Sender: FDA-Public Use
  Company Number: IT-WATSON-2015-08579

PATIENT
  Age: 82 Year
  Sex: Female

DRUGS (2)
  1. DIBASE [Concomitant]
     Active Substance: CHOLECALCIFEROL
     Indication: VITAMIN D DEFICIENCY
     Dosage: 100 IU (IN THOUSANDS), UNKNOWN
     Route: 048
  2. ALENDRONATE SODIUM- (UNKNOWN) [Suspect]
     Active Substance: ALENDRONATE SODIUM
     Indication: METASTASES TO BONE
     Dosage: 70 MG, 1/WEEK
     Route: 048
     Dates: start: 19900501, end: 20090501

REACTIONS (3)
  - Swelling [Unknown]
  - Fistula [Unknown]
  - Pain in jaw [Unknown]

NARRATIVE: CASE EVENT DATE: 20131201
